FAERS Safety Report 4988346-X (Version None)
Quarter: 2006Q2

REPORT INFORMATION
  Report Type: 
  Country: None (occurrence: None)
  Receive Date: 20060502
  Receipt Date: 20060424
  Transmission Date: 20061013
  Serious: Yes (Other)
  Sender: FDA-Public Use
  Company Number: 2006AP01952

PATIENT
  Age: 70 Year
  Sex: Female

DRUGS (3)
  1. IRESSA [Suspect]
     Indication: LUNG ADENOCARCINOMA
     Route: 048
     Dates: start: 20060309, end: 20060329
  2. IRESSA [Suspect]
     Dosage: TEMPORALLY INTERUPTED AS EVENT DID NOT IMPROVE.
     Route: 048
     Dates: start: 20060330
  3. IRESSA [Suspect]
     Route: 048
     Dates: end: 20060406

REACTIONS (1)
  - WHITE BLOOD CELL COUNT INCREASED [None]
